FAERS Safety Report 8764282 (Version 1)
Quarter: 2012Q4

REPORT INFORMATION
  Report Type: 
  Country: FR (occurrence: FR)
  Receive Date: 20120831
  Receipt Date: 20120831
  Transmission Date: 20130627
  Serious: Yes (Death, Life-Threatening)
  Sender: FDA-Public Use
  Company Number: FR-TEVA-356587USA

PATIENT
  Age: 74 Year
  Sex: Female

DRUGS (15)
  1. TREANDA [Suspect]
     Route: 042
     Dates: start: 20111209
  2. TILDIEM [Concomitant]
  3. MONICOR [Concomitant]
  4. CONTRAMAL [Concomitant]
  5. DAFALGAN [Concomitant]
  6. IMOVANE [Concomitant]
  7. CORTANCYL [Concomitant]
     Dates: start: 20111120
  8. BACTRIM [Concomitant]
  9. ZELITREX [Concomitant]
  10. AREDIA [Concomitant]
  11. ERYTHROPOIETIN [Concomitant]
  12. G-CSF [Concomitant]
  13. ZOPHREN [Concomitant]
  14. METHYLPREDNISOLONE [Concomitant]
  15. POLARAMINE [Concomitant]

REACTIONS (2)
  - Thrombocytopenia [Fatal]
  - Generalised oedema [Fatal]
